FAERS Safety Report 6301204-3 (Version None)
Quarter: 2009Q3

REPORT INFORMATION
  Report Type: 
  Country: None (occurrence: None)
  Receive Date: 20090807
  Receipt Date: 20090728
  Transmission Date: 20100115
  Serious: Yes (Hospitalization)
  Sender: FDA-Public Use
  Company Number: US-BAXTER-2009BH012133

PATIENT
  Age: 3 Month
  Sex: Male
  Weight: 5 kg

DRUGS (10)
  1. ADVATE [Suspect]
     Indication: FACTOR VIII DEFICIENCY
     Route: 042
     Dates: start: 20051226
  2. ADVATE [Suspect]
     Route: 042
     Dates: start: 20051103, end: 20051107
  3. ADVATE [Suspect]
     Route: 042
     Dates: start: 20051108, end: 20051109
  4. ADVATE [Suspect]
     Route: 042
     Dates: start: 20051110, end: 20051111
  5. ADVATE [Suspect]
     Route: 042
     Dates: start: 20051112, end: 20051123
  6. ADVATE [Suspect]
     Route: 042
     Dates: start: 20051124, end: 20051128
  7. ADVATE [Suspect]
     Route: 042
     Dates: start: 20051129, end: 20051226
  8. ADVATE [Suspect]
     Route: 042
     Dates: start: 20051129, end: 20051226
  9. ZANTAC [Concomitant]
     Route: 048
     Dates: start: 20051129
  10. FESOFOR [Concomitant]
     Dates: start: 20051129

REACTIONS (2)
  - ECCHYMOSIS [None]
  - FACTOR VIII INHIBITION [None]
